FAERS Safety Report 8907019 (Version 1)
Quarter: 2012Q4

REPORT INFORMATION
  Report Type: 
  Country: US (occurrence: US)
  Receive Date: 20121114
  Receipt Date: 20121114
  Transmission Date: 20130627
  Serious: Yes (Other)
  Sender: FDA-Public Use
  Company Number: US-SANOFI-AVENTIS-2012SA082431

PATIENT
  Sex: Female

DRUGS (3)
  1. LANTUS [Suspect]
     Dosage: vial.
     Route: 058
     Dates: start: 2000
  2. LANTUS SOLOSTAR [Suspect]
     Route: 058
  3. SOLOSTAR [Suspect]

REACTIONS (3)
  - Blindness [Not Recovered/Not Resolved]
  - Pancreas transplant [Unknown]
  - Renal transplant [Unknown]
